FAERS Safety Report 14618499 (Version 1)
Quarter: 2018Q1

REPORT INFORMATION
  Report Type: Spontaneous
  Country: ZA (occurrence: ZA)
  Receive Date: 20180309
  Receipt Date: 20180309
  Transmission Date: 20180509
  Serious: Yes (Hospitalization)
  Sender: FDA-Public Use
  Company Number: ZA-PFIZER INC-2018094687

PATIENT
  Age: 70 Year
  Sex: Female

DRUGS (7)
  1. ACTONEL [Suspect]
     Active Substance: RISEDRONATE SODIUM
     Dosage: 150 MG, MONTHLY
  2. METHOTREXATE SODIUM. [Suspect]
     Active Substance: METHOTREXATE SODIUM
     Dosage: 2.5 MG, UNK
  3. OXYBUTIN [Suspect]
     Active Substance: OXYBUTYNIN
     Dosage: 5 MG, UNK
  4. FEDALOC [Suspect]
     Active Substance: NIFEDIPINE
     Dosage: 30 MG, UNK
  5. PATANOL [Suspect]
     Active Substance: OLOPATADINE HYDROCHLORIDE
     Dosage: 0.1 %, UNK
  6. WARFARIN [Suspect]
     Active Substance: WARFARIN
     Dosage: 5 MG, UNK
  7. FOLIC ACID. [Suspect]
     Active Substance: FOLIC ACID
     Dosage: 2.5 MG, UNK

REACTIONS (1)
  - Cataract [Recovering/Resolving]
